FAERS Safety Report 4551199-8 (Version None)
Quarter: 2005Q1

REPORT INFORMATION
  Report Type: 
  Country: None (occurrence: None)
  Receive Date: 20050106
  Receipt Date: 20041221
  Transmission Date: 20050727
  Serious: Yes (Hospitalization, Other)
  Sender: FDA-Public Use
  Company Number: FR-2004-037277

PATIENT
  Age: 75 Year
  Sex: Male

DRUGS (5)
  1. SOTALOL (SOTALOL HYDROCHLORIDE) [Suspect]
  2. COUMADIN [Suspect]
     Dosage: SEE IMAGE
     Route: 048
     Dates: end: 20041115
  3. DIGOXIN [Suspect]
  4. NEXIUM [Suspect]
  5. KARDEGIC (ACETYLSALICYLATE LYSINE) [Suspect]

REACTIONS (4)
  - HAEMATOCRIT DECREASED [None]
  - HAEMATOMA [None]
  - INTERNATIONAL NORMALISED RATIO INCREASED [None]
  - PROTHROMBIN TIME RATIO DECREASED [None]
